FAERS Safety Report 8517252-9 (Version None)
Quarter: 2012Q3

REPORT INFORMATION
  Report Type: 
  Country: None (occurrence: None)
  Receive Date: 20120718
  Receipt Date: 20120706
  Transmission Date: 20120928
  Serious: Yes (Other)
  Sender: FDA-Public Use
  Company Number: NZ-CELGENEUS-118-C5013-12070506

PATIENT
  Sex: Male
  Weight: 88.7 kg

DRUGS (14)
  1. DOMPERIDONE [Concomitant]
     Route: 048
     Dates: start: 20101109
  2. THALIDOMIDE [Suspect]
     Indication: MULTIPLE MYELOMA
     Dosage: 200 MILLIGRAM
     Route: 048
     Dates: start: 20101221, end: 20120327
  3. MELPHALAN HYDROCHLORIDE [Suspect]
     Indication: MULTIPLE MYELOMA
     Dosage: 22 MILLIGRAM
     Route: 048
     Dates: start: 20101221, end: 20120217
  4. ONDANSETRON [Concomitant]
     Dosage: 8 MILLIGRAM
     Route: 048
     Dates: start: 20101109
  5. SIMVASTATIN [Concomitant]
     Indication: CORONARY ARTERY DISEASE
     Dosage: 40 MILLIGRAM
     Route: 048
     Dates: start: 20100401
  6. CALCIUM CARBONATE [Concomitant]
     Dosage: 500
     Route: 048
     Dates: start: 20100401
  7. ASPIRIN [Concomitant]
     Indication: CORONARY ARTERY DISEASE
     Dosage: 300 MILLIGRAM
     Route: 048
     Dates: start: 20100401
  8. OMEPRAZOLE [Concomitant]
     Indication: GASTROOESOPHAGEAL REFLUX PROPHYLAXIS
     Dosage: 20 MILLIGRAM
     Route: 048
     Dates: start: 20101109
  9. LAXSOL [Concomitant]
     Indication: CONSTIPATION PROPHYLAXIS
     Route: 048
     Dates: start: 20100819
  10. ACETAMINOPHEN [Concomitant]
     Indication: PAIN
     Route: 048
     Dates: start: 20100401
  11. DIAZEPAM [Concomitant]
     Dosage: 10 MILLIGRAM
     Route: 048
     Dates: start: 20100401
  12. PREDNISONE [Suspect]
     Indication: MULTIPLE MYELOMA
     Dosage: 180 MILLIGRAM
     Route: 048
     Dates: start: 20101221, end: 20120217
  13. CHOLECALCIFEROL [Concomitant]
     Route: 048
     Dates: start: 20100401
  14. PAMIDRONATE DISODIUM [Concomitant]
     Indication: BONE DISORDER
     Route: 041
     Dates: start: 20110502

REACTIONS (1)
  - BASAL CELL CARCINOMA [None]
